FAERS Safety Report 13505955 (Version 1)
Quarter: 2017Q2

REPORT INFORMATION
  Report Type: Spontaneous
  Country: US (occurrence: US)
  Receive Date: 20170502
  Receipt Date: 20170502
  Transmission Date: 20170830
  Serious: No
  Sender: FDA-Public Use
  Company Number: US-ROCHE-1412557

PATIENT
  Sex: Female

DRUGS (2)
  1. AVASTIN [Suspect]
     Active Substance: BEVACIZUMAB
     Indication: DIABETIC RETINOPATHY
     Dosage: RIGHT EYE AND LEFT EYE
     Route: 065
     Dates: start: 20111020
  2. AVASTIN [Suspect]
     Active Substance: BEVACIZUMAB
     Dosage: RIGHT EYE AND LEFT EYE
     Route: 065
     Dates: start: 20120114

REACTIONS (1)
  - Retinal scar [Unknown]
